FAERS Safety Report 24926697 (Version 1)
Quarter: 2025Q1

REPORT INFORMATION
  Report Type: Spontaneous
  Country: US (occurrence: US)
  Receive Date: 20250205
  Receipt Date: 20250205
  Transmission Date: 20250409
  Serious: Yes (Death, Hospitalization)
  Sender: ENDO
  Company Number: US-ENDO USA, INC.-2025-000220

PATIENT
  Age: 78 Year
  Sex: Male

DRUGS (5)
  1. COLCHICINE [Suspect]
     Active Substance: COLCHICINE
     Indication: Pericarditis
     Route: 065
  2. COLCHICINE [Suspect]
     Active Substance: COLCHICINE
     Route: 048
  3. DOXYCYCLINE [Concomitant]
     Active Substance: DOXYCYCLINE
     Indication: Product used for unknown indication
     Route: 065
  4. LEVOTHYROXINE [Concomitant]
     Active Substance: LEVOTHYROXINE
     Indication: Product used for unknown indication
     Route: 065
  5. ROSUVASTATIN [Concomitant]
     Active Substance: ROSUVASTATIN
     Indication: Product used for unknown indication
     Route: 065

REACTIONS (19)
  - Completed suicide [Fatal]
  - Cardiac arrest [Fatal]
  - Heart rate decreased [Unknown]
  - Oxygen saturation decreased [Unknown]
  - White blood cell count increased [Unknown]
  - Troponin increased [Unknown]
  - Metabolic acidosis [Unknown]
  - International normalised ratio increased [Unknown]
  - Atrial fibrillation [Unknown]
  - Hypotension [Unknown]
  - Pleural effusion [Unknown]
  - Bradycardia [Unknown]
  - Shock [Unknown]
  - Blood lactic acid increased [Unknown]
  - Respiratory failure [Unknown]
  - Vomiting [Unknown]
  - Nausea [Unknown]
  - Intentional overdose [Fatal]
  - Off label use [Unknown]

NARRATIVE: CASE EVENT DATE: 20230101
